FAERS Safety Report 6705902-9 (Version None)
Quarter: 2010Q2

REPORT INFORMATION
  Report Type: 
  Country: None (occurrence: None)
  Receive Date: 20100503
  Receipt Date: 20100302
  Transmission Date: 20101027
  Serious: No
  Sender: FDA-Public Use
  Company Number: US-ASTRAZENECA-2010SE08995

PATIENT
  Age: 6 Month
  Sex: Male
  Weight: 7.7 kg

DRUGS (2)
  1. NEXIUM [Suspect]
     Indication: GASTROOESOPHAGEAL REFLUX DISEASE
     Route: 048
     Dates: start: 20091201
  2. NEXIUM [Suspect]
     Route: 048
     Dates: start: 20100201

REACTIONS (4)
  - DISCOMFORT [None]
  - MEDICATION ERROR [None]
  - SCREAMING [None]
  - VOMITING [None]
